FAERS Safety Report 6232857-6 (Version None)
Quarter: 2009Q2

REPORT INFORMATION
  Report Type: 
  Country: None (occurrence: None)
  Receive Date: 20090617
  Receipt Date: 20081203
  Transmission Date: 20091009
  Serious: No
  Sender: FDA-Public Use
  Company Number: US-ASTRAZENECA-2008UW26862

PATIENT
  Age: 81 Year
  Sex: Female
  Weight: 59 kg

DRUGS (1)
  1. FASLODEX [Suspect]
     Indication: NEOPLASM MALIGNANT
     Dosage: UNKNOWN
     Route: 030

REACTIONS (2)
  - INFLUENZA LIKE ILLNESS [None]
  - NASAL CONGESTION [None]
